APPROVED DRUG PRODUCT: ERLOTINIB HYDROCHLORIDE
Active Ingredient: ERLOTINIB HYDROCHLORIDE
Strength: EQ 150MG BASE
Dosage Form/Route: TABLET;ORAL
Application: A216342 | Product #003
Applicant: EUGIA PHARMA SPECIALITIES LTD
Approved: Jun 22, 2022 | RLD: No | RS: No | Type: DISCN